FAERS Safety Report 4464930-7 (Version None)
Quarter: 2004Q4

REPORT INFORMATION
  Report Type: 
  Country: None (occurrence: None)
  Receive Date: 20041004
  Receipt Date: 20040311
  Transmission Date: 20050328
  Serious: No
  Sender: FDA-Public Use
  Company Number: MCN364914

PATIENT
  Age: 80 Year
  Sex: Female

DRUGS (10)
  1. COREG [Suspect]
     Indication: ILL-DEFINED DISORDER
     Dosage: 12.5MG TWICE PER DAY
     Route: 048
  2. LASIX [Concomitant]
  3. SPIRONOLACTONE [Concomitant]
  4. FOLIC ACID SUPPLEMENT [Concomitant]
  5. MULTI-VITAMIN [Concomitant]
  6. WARFARIN SODIUM [Concomitant]
  7. ATACAND [Concomitant]
  8. ZOCOR [Concomitant]
  9. ASPIRIN [Concomitant]
  10. COLACE [Concomitant]

REACTIONS (5)
  - NAIL DISCOLOURATION [None]
  - PAIN IN EXTREMITY [None]
  - PARAESTHESIA [None]
  - PERIPHERAL COLDNESS [None]
  - SKIN DISCOLOURATION [None]
